FAERS Safety Report 6479350-3 (Version None)
Quarter: 2009Q4

REPORT INFORMATION
  Report Type: 
  Country: None (occurrence: None)
  Receive Date: 20091207
  Receipt Date: 20090902
  Transmission Date: 20100525
  Serious: No
  Sender: FDA-Public Use
  Company Number: US-AMGEN-KDL335462

PATIENT
  Sex: Female
  Weight: 116.7 kg

DRUGS (10)
  1. ENBREL [Suspect]
     Indication: PSORIATIC ARTHROPATHY
     Route: 058
     Dates: start: 20050601, end: 20090401
  2. PREDNISONE [Concomitant]
  3. ARTHROTEC [Concomitant]
  4. AMITRIPTYLINE [Concomitant]
  5. DIOVAN [Concomitant]
  6. LORTAB [Concomitant]
  7. LASIX [Concomitant]
  8. LANTUS [Concomitant]
  9. ASPIRIN [Concomitant]
  10. METFORMIN HCL [Concomitant]

REACTIONS (2)
  - POSTMENOPAUSAL HAEMORRHAGE [None]
  - PSORIATIC ARTHROPATHY [None]
